FAERS Safety Report 13574396 (Version 1)
Quarter: 2017Q2

REPORT INFORMATION
  Report Type: Spontaneous
  Country: GB (occurrence: GB)
  Receive Date: 20170523
  Receipt Date: 20170523
  Transmission Date: 20170830
  Serious: Yes (Other)
  Sender: FDA-Public Use
  Company Number: GB-TEVA-768990ACC

PATIENT
  Age: 36 Year
  Sex: Female

DRUGS (1)
  1. ONDANSETRON HYDROCHLORIDE. [Suspect]
     Active Substance: ONDANSETRON HYDROCHLORIDE

REACTIONS (3)
  - Muscular weakness [Recovered/Resolved with Sequelae]
  - Contusion [Recovered/Resolved with Sequelae]
  - Extrapyramidal disorder [Unknown]
